FAERS Safety Report 19386903 (Version 1)
Quarter: 2021Q2

REPORT INFORMATION
  Report Type: Spontaneous
  Country: BE (occurrence: BE)
  Receive Date: 20210607
  Receipt Date: 20210607
  Transmission Date: 20210717
  Serious: Yes (Hospitalization, Other)
  Sender: FDA-Public Use
  Company Number: BE-ANIPHARMA-2021-BE-000019

PATIENT
  Age: 53 Year
  Sex: Male
  Weight: 65 kg

DRUGS (2)
  1. ALCOHOL. [Suspect]
     Active Substance: ALCOHOL
     Indication: PRODUCT USED FOR UNKNOWN INDICATION
     Route: 048
  2. VALPROIC ACID (NON?SPECIFIC) [Suspect]
     Active Substance: VALPROIC ACID
     Indication: EPILEPSY

REACTIONS (2)
  - Acute kidney injury [Recovered/Resolved]
  - Hyponatraemia [Recovered/Resolved]
